FAERS Safety Report 6751082-3 (Version None)
Quarter: 2010Q2

REPORT INFORMATION
  Report Type: 
  Country: None (occurrence: None)
  Receive Date: 20100602
  Receipt Date: 20100519
  Transmission Date: 20101027
  Serious: Yes (Hospitalization)
  Sender: FDA-Public Use
  Company Number: US-JNJFOC-20060201189

PATIENT
  Age: 36 Year
  Sex: Female

DRUGS (3)
  1. IBUPROFEN [Suspect]
     Indication: ARTHRALGIA
  2. IBUPROFEN [Suspect]
  3. IBUPROFEN [Suspect]

REACTIONS (2)
  - HYPERSENSITIVITY [None]
  - PYREXIA [None]
